FAERS Safety Report 17855606 (Version 1)
Quarter: 2020Q2

REPORT INFORMATION
  Report Type: Spontaneous
  Country: US (occurrence: US)
  Receive Date: 20200603
  Receipt Date: 20200603
  Transmission Date: 20200714
  Serious: Yes (Hospitalization, Other)
  Sender: FDA-Public Use
  Company Number: None

PATIENT
  Age: 68 Year
  Sex: Male
  Weight: 74.7 kg

DRUGS (1)
  1. TRIESENCE [Suspect]
     Active Substance: TRIAMCINOLONE ACETONIDE
     Indication: MACULAR OEDEMA
     Dosage: ?          OTHER FREQUENCY:ONCE;?
     Route: 047
     Dates: start: 20200420, end: 20200420

REACTIONS (6)
  - Eye pain [None]
  - Ocular discomfort [None]
  - Endophthalmitis [None]
  - Visual impairment [None]
  - Vision blurred [None]
  - Asthenopia [None]

NARRATIVE: CASE EVENT DATE: 20200420
